FAERS Safety Report 5215138-9 (Version None)
Quarter: 2007Q1

REPORT INFORMATION
  Report Type: 
  Country: None (occurrence: None)
  Receive Date: 20070117
  Receipt Date: 20070109
  Transmission Date: 20070707
  Serious: Yes (Other)
  Sender: FDA-Public Use
  Company Number: OSCN-GE-0701S-0013

PATIENT
  Age: 66 Year
  Sex: Female

DRUGS (1)
  1. OMNISCAN [Suspect]
     Indication: ANGIOPATHY
     Dosage: 32 ML, SINGLE DOSE, I.V.
     Route: 042
     Dates: start: 20050704, end: 20050704

REACTIONS (2)
  - KIDNEY FIBROSIS [None]
  - NEPHROGENIC FIBROSING DERMOPATHY [None]
